FAERS Safety Report 13199589 (Version 1)
Quarter: 2017Q1

REPORT INFORMATION
  Report Type: Spontaneous
  Country: US (occurrence: US)
  Receive Date: 20170208
  Receipt Date: 20170208
  Transmission Date: 20170428
  Serious: Yes (Other)
  Sender: FDA-Public Use
  Company Number: US-ELI_LILLY_AND_COMPANY-US201607010297

PATIENT
  Age: 46 Year

DRUGS (3)
  1. DULOXETINE HYDROCHLORIDE. [Suspect]
     Active Substance: DULOXETINE HYDROCHLORIDE
     Indication: DEPRESSION
     Dosage: 20 MG, UNK
     Route: 048
  2. ATIVAN [Suspect]
     Active Substance: LORAZEPAM
     Indication: PRODUCT USED FOR UNKNOWN INDICATION
  3. CYMBALTA [Suspect]
     Active Substance: DULOXETINE HYDROCHLORIDE
     Indication: DEPRESSION
     Dosage: UNK, UNKNOWN
     Route: 048

REACTIONS (21)
  - Fatigue [Unknown]
  - Dizziness [Unknown]
  - Paraesthesia [Unknown]
  - Irritability [Unknown]
  - Drug effect decreased [Unknown]
  - Suicidal ideation [Unknown]
  - Anxiety [Unknown]
  - Acne [Unknown]
  - Lethargy [Unknown]
  - Dysphoria [Unknown]
  - Agitation [Unknown]
  - Vertigo [Unknown]
  - Nausea [Unknown]
  - Hyperhidrosis [Unknown]
  - Insomnia [Unknown]
  - Hepatic enzyme increased [Recovered/Resolved]
  - Affect lability [Unknown]
  - Drug withdrawal syndrome [Unknown]
  - Headache [Unknown]
  - Weight increased [Unknown]
  - Aspartate aminotransferase increased [Unknown]

NARRATIVE: CASE EVENT DATE: 201109
